FAERS Safety Report 20235178 (Version 1)
Quarter: 2021Q4

REPORT INFORMATION
  Report Type: Report from Study
  Country: US (occurrence: US)
  Receive Date: 20211227
  Receipt Date: 20211227
  Transmission Date: 20220303
  Serious: No
  Sender: FDA-Public Use
  Company Number: US-BIOVITRUM-2021US12610

PATIENT
  Sex: Male

DRUGS (3)
  1. SYNAGIS [Suspect]
     Active Substance: PALIVIZUMAB
     Indication: Antiviral prophylaxis
     Route: 030
  2. POLY-VI-SOL/IRON [Concomitant]
  3. FAMOTIDINE [Concomitant]
     Active Substance: FAMOTIDINE

REACTIONS (2)
  - Cough [Unknown]
  - Pyrexia [Recovered/Resolved]
